FAERS Safety Report 23486089 (Version 1)
Quarter: 2024Q1

REPORT INFORMATION
  Report Type: Spontaneous
  Country: CN (occurrence: CN)
  Receive Date: 20240206
  Receipt Date: 20240206
  Transmission Date: 20240409
  Serious: Yes (Disabling, Other)
  Sender: FDA-Public Use
  Company Number: CN-GLAXOSMITHKLINE-CN2024APC013166

PATIENT

DRUGS (3)
  1. BELIMUMAB [Suspect]
     Active Substance: BELIMUMAB
     Indication: Systemic lupus erythematosus
     Dosage: 720 MG
     Route: 042
     Dates: start: 20231216, end: 20231216
  2. SODIUM CHLORIDE [Concomitant]
     Active Substance: SODIUM CHLORIDE
     Indication: Systemic lupus erythematosus
     Dosage: 250 ML, QD
     Route: 042
     Dates: start: 20231216, end: 20231216
  3. STERILE WATER [Concomitant]
     Active Substance: WATER
     Indication: Systemic lupus erythematosus
     Dosage: 9 ML, QD
     Route: 042
     Dates: start: 20231216, end: 20231216

REACTIONS (1)
  - Myelosuppression [Recovered/Resolved]

NARRATIVE: CASE EVENT DATE: 20231216
